FAERS Safety Report 14076529 (Version 1)
Quarter: 2017Q4

REPORT INFORMATION
  Report Type: Spontaneous
  Country: NZ (occurrence: NZ)
  Receive Date: 20171011
  Receipt Date: 20171011
  Transmission Date: 20180321
  Serious: Yes (Death)
  Sender: FDA-Public Use
  Company Number: NZ-009507513-1710NZL003174

PATIENT
  Age: 50 Year
  Sex: Female

DRUGS (3)
  1. QUETIAPINE FUMARATE. [Concomitant]
     Active Substance: QUETIAPINE FUMARATE
  2. TAMOXIFEN [Concomitant]
     Active Substance: TAMOXIFEN
  3. SIMVASTATIN. [Suspect]
     Active Substance: SIMVASTATIN
     Route: 048

REACTIONS (1)
  - Myositis [Fatal]

NARRATIVE: CASE EVENT DATE: 201605
